FAERS Safety Report 7660388-5 (Version None)
Quarter: 2011Q3

REPORT INFORMATION
  Report Type: 
  Country: None (occurrence: None)
  Receive Date: 20110805
  Receipt Date: 20110727
  Transmission Date: 20111222
  Serious: Yes (Other)
  Sender: FDA-Public Use
  Company Number: JP-B.I. PHARMACEUTICALS,INC./RIDGEFIELD-2011-BP-18623NB

PATIENT
  Sex: Male

DRUGS (4)
  1. PRAMIPEXOLE DIHYDROCHLORIDE [Suspect]
     Indication: DEPRESSION
     Dosage: 0.25 MG
     Route: 048
     Dates: start: 20100317, end: 20110726
  2. PRAMIPEXOLE DIHYDROCHLORIDE [Suspect]
     Indication: ANTIDEPRESSANT THERAPY
  3. LUVOX [Concomitant]
     Indication: ANTIDEPRESSANT THERAPY
     Dosage: 50 MG
     Route: 048
     Dates: start: 20100701
  4. MENEST [Concomitant]
     Indication: PARKINSONISM
     Dosage: 100 MG
     Route: 048
     Dates: start: 20090620

REACTIONS (1)
  - INTERSTITIAL LUNG DISEASE [None]
